FAERS Safety Report 20650890 (Version 1)
Quarter: 2022Q1

REPORT INFORMATION
  Report Type: Spontaneous
  Country: RS (occurrence: RS)
  Receive Date: 20220329
  Receipt Date: 20220329
  Transmission Date: 20220423
  Serious: Yes (Other)
  Sender: FDA-Public Use
  Company Number: RS-009507513-2203SRB008647

PATIENT
  Age: 63 Year
  Sex: Male

DRUGS (1)
  1. KEYTRUDA [Suspect]
     Active Substance: PEMBROLIZUMAB
     Indication: Metastatic malignant melanoma
     Dosage: 34 CYCLES RECEIVED
     Dates: start: 20191115

REACTIONS (3)
  - Neutropenia [Unknown]
  - Decreased appetite [Unknown]
  - Therapy partial responder [Unknown]
